FAERS Safety Report 7519349-9 (Version None)
Quarter: 2011Q2

REPORT INFORMATION
  Report Type: 
  Country: None (occurrence: None)
  Receive Date: 20110602
  Receipt Date: 20110524
  Transmission Date: 20111010
  Serious: Yes (Other)
  Sender: FDA-Public Use
  Company Number: US-ASTRAZENECA-2011SE32219

PATIENT
  Age: 55 Year
  Sex: Male

DRUGS (1)
  1. NEXIUM [Suspect]
     Route: 048

REACTIONS (5)
  - FRACTURED COCCYX [None]
  - CORONARY ARTERY DISEASE [None]
  - GINGIVAL CANCER [None]
  - BLINDNESS [None]
  - CEREBROVASCULAR ACCIDENT [None]
